FAERS Safety Report 18510310 (Version 2)
Quarter: 2021Q3

REPORT INFORMATION
  Report Type: Spontaneous
  Country: DE (occurrence: DE)
  Receive Date: 20201117
  Receipt Date: 20210707
  Transmission Date: 20211014
  Serious: Yes (Hospitalization)
  Sender: FDA-Public Use
  Company Number: DE-TEVA-2020-DE-1848565

PATIENT
  Age: 78 Year
  Sex: Male

DRUGS (22)
  1. CANDESARTAN. [Concomitant]
     Active Substance: CANDESARTAN
     Dosage: 16 MILLIGRAM DAILY;  1?0?0?0
  2. VINCRISTIN [Suspect]
     Active Substance: VINCRISTINE
     Route: 065
  3. COLECALCIFEROL (VITAMIN D) [Concomitant]
     Active Substance: CHOLECALCIFEROL
     Dosage: 1000 IU (INTERNATIONAL UNIT) DAILY;  1?0?0?0
  4. VORICONAZOL [Concomitant]
     Active Substance: VORICONAZOLE
     Dosage: 400 MILLIGRAM DAILY;  1?0?1?0
  5. DEKRISTOL 1000 [Concomitant]
     Dosage: 1000 IU (INTERNATIONAL UNIT) DAILY; 1?0?0?0
  6. IBRUTINIB [Concomitant]
     Active Substance: IBRUTINIB
     Dosage: 560 MG
     Dates: start: 20200729
  7. DEXAMETHASON [Concomitant]
     Active Substance: DEXAMETHASONE
     Dosage: 2 MILLIGRAM DAILY;  1?0?0?0
  8. FENTANYL 37,5 MICROGRAMM/H [Concomitant]
     Dosage: 37.5 MCG / H, CHANGE EVERY 3D, 1 DF
  9. BORTEZOMIB. [Suspect]
     Active Substance: BORTEZOMIB
     Route: 065
  10. COTRIMOXAZOL [Concomitant]
     Active Substance: SULFAMETHOXAZOLE\TRIMETHOPRIM
     Dosage: 960 MILLIGRAM DAILY;  1?0?0?0
  11. METAMIZOL [Concomitant]
     Active Substance: METAMIZOLE SODIUM
     Dosage: REQUIREMENT
  12. MOLSIDOMIN [Concomitant]
     Active Substance: MOLSIDOMINE
     Dosage: 8 MG, PAUSED
  13. ALLOPURINOL. [Concomitant]
     Active Substance: ALLOPURINOL
     Dosage: 300 MILLIGRAM DAILY;  1?0?0?0
  14. ASS 100 [Concomitant]
     Active Substance: ASPIRIN
     Dosage: 100 MILLIGRAM DAILY;  0?1?0?0
  15. TRIMIPRAMIN [Concomitant]
     Active Substance: TRIMIPRAMINE
     Dosage: 100 MILLIGRAM DAILY;  0?0?1?0
  16. METOCLOPRAMID [Concomitant]
     Active Substance: METOCLOPRAMIDE
     Dosage: 10 MG,  REQUIREMENT
  17. PANTOPRAZOL [Concomitant]
     Active Substance: PANTOPRAZOLE SODIUM
     Dosage: 40 MILLIGRAM DAILY;  1?0?0?0
  18. IBRUTINIB [Suspect]
     Active Substance: IBRUTINIB
     Dosage: 560 MG
  19. MOVICOL [Concomitant]
     Active Substance: POLYETHYLENE GLYCOL 3350\POTASSIUM CHLORIDE\SODIUM BICARBONATE\SODIUM CHLORIDE
     Dosage: 2 DOSAGE FORMS DAILY; 1?1?0?0
  20. AMLODIPIN [Concomitant]
     Active Substance: AMLODIPINE BESYLATE
     Dosage: 10 MILLIGRAM DAILY; , 0?0?1?0
  21. IBRUTINIB [Concomitant]
     Active Substance: IBRUTINIB
     Dosage: 560 MILLIGRAM DAILY;  1?0?0?0
  22. METOPROLOL. [Concomitant]
     Active Substance: METOPROLOL
     Dosage: 95 MILLIGRAM DAILY; 23.75 MG, 2?0?2?0

REACTIONS (5)
  - Dizziness [Unknown]
  - Decreased appetite [Unknown]
  - General physical health deterioration [Unknown]
  - Polyneuropathy [Unknown]
  - Back pain [Unknown]
